FAERS Safety Report 14111487 (Version 1)
Quarter: 2017Q4

REPORT INFORMATION
  Report Type: Spontaneous
  Country: FR (occurrence: FR)
  Receive Date: 20171020
  Receipt Date: 20171020
  Transmission Date: 20180321
  Serious: Yes (Other)
  Sender: FDA-Public Use
  Company Number: FR-MERCK KGAA-2030935

PATIENT
  Age: 48 Year
  Sex: Female

DRUGS (5)
  1. NOVOTHYROX [Suspect]
     Active Substance: LEVOTHYROXINE SODIUM
     Indication: THYROIDITIS
     Dates: start: 201705
  2. DAFALGAN (PARACETAMOL) [Concomitant]
  3. MIOREL(THIOCOLCHICOSIDE) [Concomitant]
  4. LUTERAN(CHLORMADINONE ACETATE)( [Concomitant]
  5. PLAQUENIL [Concomitant]
     Active Substance: HYDROXYCHLOROQUINE SULFATE
     Dates: end: 201706

REACTIONS (11)
  - Diarrhoea [Unknown]
  - Haematoma [Unknown]
  - Gastrointestinal disorder [Unknown]
  - Muscle disorder [Unknown]
  - Pain in extremity [Unknown]
  - Muscle spasms [Unknown]
  - Tendon disorder [Unknown]
  - Headache [Unknown]
  - Monoplegia [Unknown]
  - Myalgia [Unknown]
  - Back pain [Unknown]

NARRATIVE: CASE EVENT DATE: 2017
